FAERS Safety Report 17978693 (Version 2)
Quarter: 2020Q3

REPORT INFORMATION
  Report Type: Spontaneous
  Country: HU (occurrence: HU)
  Receive Date: 20200703
  Receipt Date: 20200707
  Transmission Date: 20201103
  Serious: Yes (Other)
  Sender: FDA-Public Use
  Company Number: HU-BRISTOL-MYERS SQUIBB COMPANY-BMS-2020-049797

PATIENT
  Age: 52 Year
  Sex: Male

DRUGS (5)
  1. LITALIR [Suspect]
     Active Substance: HYDROXYUREA
     Dosage: UNK
     Route: 065
     Dates: start: 20091202, end: 20120412
  2. MEDROL [Concomitant]
     Active Substance: METHYLPREDNISOLONE
     Indication: PRODUCT USED FOR UNKNOWN INDICATION
     Dosage: UNK
     Route: 065
  3. LITALIR [Suspect]
     Active Substance: HYDROXYUREA
     Dosage: UNK
     Route: 065
     Dates: start: 20131120, end: 20140901
  4. RUXOLITINIB [Suspect]
     Active Substance: RUXOLITINIB
     Indication: MYELOFIBROSIS
     Dosage: 40 MILLIGRAM, QD(20 MG, BID)
     Route: 065
     Dates: start: 20140901
  5. LITALIR [Suspect]
     Active Substance: HYDROXYUREA
     Indication: PRODUCT USED FOR UNKNOWN INDICATION
     Dosage: UNK
     Route: 065
     Dates: start: 20050915, end: 20070917

REACTIONS (19)
  - Splenomegaly [Unknown]
  - Second primary malignancy [Unknown]
  - Staphylococcal infection [Unknown]
  - Squamous cell carcinoma of head and neck [Unknown]
  - Keratoacanthoma [Unknown]
  - Basal cell carcinoma [Unknown]
  - Osteolysis [Unknown]
  - Myelofibrosis [Unknown]
  - White blood cell count increased [Unknown]
  - Skin disorder [Unknown]
  - Bone disorder [Unknown]
  - Lung abscess [Unknown]
  - Haemoglobin decreased [Unknown]
  - Renal disorder [Unknown]
  - Thrombocytopenia [Unknown]
  - Brain abscess [Unknown]
  - Leukoerythroblastosis [Unknown]
  - Seborrhoeic keratosis [Unknown]
  - Basophil percentage increased [Unknown]

NARRATIVE: CASE EVENT DATE: 20140901
